FAERS Safety Report 4632752-X (Version None)
Quarter: 2005Q2

REPORT INFORMATION
  Report Type: 
  Country: None (occurrence: None)
  Receive Date: 20050408
  Receipt Date: 20050408
  Transmission Date: 20051028
  Serious: Yes (Other)
  Sender: FDA-Public Use
  Company Number: None

PATIENT
  Age: 51 Year
  Sex: Male

DRUGS (1)
  1. GRAFT TISSUE [Suspect]

REACTIONS (4)
  - FLAT ANTERIOR CHAMBER OF EYE [None]
  - GRAFT DYSFUNCTION [None]
  - POST PROCEDURAL COMPLICATION [None]
  - VASCULAR INJURY [None]
